FAERS Safety Report 5019553-8 (Version None)
Quarter: 2006Q2

REPORT INFORMATION
  Report Type: 
  Country: None (occurrence: None)
  Receive Date: 20060601
  Receipt Date: 20060517
  Transmission Date: 20061013
  Serious: Yes (Hospitalization)
  Sender: FDA-Public Use
  Company Number: ZICO001264

PATIENT
  Age: 51 Year
  Sex: Female

DRUGS (8)
  1. PRIALT [Suspect]
     Dosage: SEE IMAGE
     Route: 037
     Dates: start: 20050401, end: 20050101
  2. PRIALT [Suspect]
     Dosage: SEE IMAGE
     Route: 037
     Dates: start: 20000101, end: 20050401
  3. PRIALT [Suspect]
     Dosage: SEE IMAGE
     Route: 037
     Dates: start: 20050101, end: 20050706
  4. FENTANYL [Concomitant]
  5. ACTIQ [Concomitant]
  6. DURAGESIC-100 [Concomitant]
  7. METHADONE HCL [Concomitant]
  8. OXYCODONE HCL [Concomitant]

REACTIONS (13)
  - ABDOMINAL DISCOMFORT [None]
  - ANOREXIA [None]
  - APHTHOUS STOMATITIS [None]
  - DEPRESSION [None]
  - DYSGEUSIA [None]
  - GASTROINTESTINAL INFLAMMATION [None]
  - MALNUTRITION [None]
  - MOUTH ULCERATION [None]
  - MUCOSAL INFLAMMATION [None]
  - NAUSEA [None]
  - PULMONARY EMBOLISM [None]
  - SKIN EXFOLIATION [None]
  - VOMITING [None]
